FAERS Safety Report 23024017 (Version 3)
Quarter: 2025Q4

REPORT INFORMATION
  Report Type: Report from Study
  Country: CA (occurrence: CA)
  Receive Date: 20231003
  Receipt Date: 20251104
  Transmission Date: 20260118
  Serious: No
  Sender: BIOGEN
  Company Number: CA-BIOGEN-2023BI01180145

PATIENT
  Age: 65 Year
  Sex: Female

DRUGS (5)
  1. TYSABRI [Suspect]
     Active Substance: NATALIZUMAB
     Indication: Multiple sclerosis
     Dates: start: 20130815, end: 20230303
  2. TYSABRI [Suspect]
     Active Substance: NATALIZUMAB
  3. TYSABRI [Suspect]
     Active Substance: NATALIZUMAB
  4. TYSABRI [Suspect]
     Active Substance: NATALIZUMAB
     Dates: start: 20230303, end: 20231117
  5. TYSABRI [Suspect]
     Active Substance: NATALIZUMAB
     Dates: start: 20231117

REACTIONS (20)
  - Inappropriate schedule of product administration [Unknown]
  - Fatigue [Not Recovered/Not Resolved]
  - Mental impairment [Not Recovered/Not Resolved]
  - Stomatitis [Recovered/Resolved]
  - Speech disorder [Unknown]
  - Disturbance in attention [Not Recovered/Not Resolved]
  - Memory impairment [Not Recovered/Not Resolved]
  - Nasopharyngitis [Not Recovered/Not Resolved]
  - Hot flush [Not Recovered/Not Resolved]
  - Prescribed underdose [Recovered/Resolved]
  - Arthralgia [Not Recovered/Not Resolved]
  - Gait disturbance [Not Recovered/Not Resolved]
  - Eye inflammation [Not Recovered/Not Resolved]
  - Epiretinal membrane [Not Recovered/Not Resolved]
  - Cyst [Not Recovered/Not Resolved]
  - Vision blurred [Not Recovered/Not Resolved]
  - Dental caries [Recovered/Resolved]
  - Poor venous access [Recovered/Resolved]
  - Headache [Not Recovered/Not Resolved]
  - Aphasia [Not Recovered/Not Resolved]

NARRATIVE: CASE EVENT DATE: 20221001
